FAERS Safety Report 5823278-6 (Version None)
Quarter: 2008Q3

REPORT INFORMATION
  Report Type: 
  Country: None (occurrence: None)
  Receive Date: 20080724
  Receipt Date: 20080724
  Transmission Date: 20090109
  Serious: Yes (Hospitalization)
  Sender: FDA-Public Use
  Company Number: None

PATIENT
  Age: 63 Year
  Sex: Female
  Weight: 77.1115 kg

DRUGS (1)
  1. FOSAMAX PLUS D [Suspect]
     Indication: OSTEOPOROSIS
     Dosage: ONE TABLET WEEKLY PO
     Route: 048
     Dates: start: 19950501, end: 20080719

REACTIONS (8)
  - FALL [None]
  - FEMUR FRACTURE [None]
  - INJURY [None]
  - LOWER LIMB FRACTURE [None]
  - MULTIPLE FRACTURES [None]
  - PARATHYROID TUMOUR BENIGN [None]
  - UPPER LIMB FRACTURE [None]
  - WRIST FRACTURE [None]
